FAERS Safety Report 10364565 (Version 2)
Quarter: 2014Q3

REPORT INFORMATION
  Report Type: Spontaneous
  Country: US (occurrence: None)
  Receive Date: 20140801
  Receipt Date: 20140828
  Transmission Date: 20150326
  Serious: Yes (Other)
  Sender: FDA-Public Use
  Company Number: 201407071

PATIENT
  Age: 49 Year
  Sex: Male

DRUGS (3)
  1. ATORVASTATIN [Concomitant]
     Active Substance: ATORVASTATIN
  2. XIAFLEX [Suspect]
     Active Substance: COLLAGENASE CLOSTRIDIUM HISTOLYTICUM
     Indication: PEYRONIE^S DISEASE
     Dosage: 0.26 1 IN 1D, INTRALESIONAL
     Dates: start: 20140702, end: 20140702
  3. TRICOR [Concomitant]
     Active Substance: FENOFIBRATE

REACTIONS (4)
  - Penile swelling [None]
  - Fracture of penis [None]
  - Penile haematoma [None]
  - Penile pain [None]

NARRATIVE: CASE EVENT DATE: 20140719
